FAERS Safety Report 9725657 (Version 2)
Quarter: 2014Q3

REPORT INFORMATION
  Report Type: Spontaneous
  Country: US (occurrence: None)
  Receive Date: 20131129
  Receipt Date: 20140818
  Transmission Date: 20150326
  Serious: Yes (Other)
  Sender: FDA-Public Use
  Company Number: 2013US002848

PATIENT
  Age: 41 Year
  Sex: Female

DRUGS (1)
  1. ICLUSIG [Suspect]
     Active Substance: PONATINIB
     Indication: CHRONIC MYELOID LEUKAEMIA
     Route: 048
     Dates: start: 20130524

REACTIONS (5)
  - Oral mucosal exfoliation [None]
  - Rash erythematous [None]
  - Erythema [None]
  - Hyperkeratosis [None]
  - Skin exfoliation [None]

NARRATIVE: CASE EVENT DATE: 20130628
